FAERS Safety Report 9963780 (Version 1)
Quarter: 2014Q1

REPORT INFORMATION
  Report Type: Report from Study
  Country: US (occurrence: US)
  Receive Date: 20140305
  Receipt Date: 20140305
  Transmission Date: 20141002
  Serious: No
  Sender: FDA-Public Use
  Company Number: US-ABBVIE-13P-163-1117056-00

PATIENT
  Age: 62 Year
  Sex: Female
  Weight: 88.53 kg

DRUGS (4)
  1. HUMIRA [Suspect]
     Indication: PSORIASIS
     Dates: start: 201111, end: 201303
  2. LEXAPRO [Concomitant]
     Indication: DEPRESSION
  3. TYLENOL ARTHRITIS PAIN [Concomitant]
     Indication: ARTHRALGIA
  4. ASPIRIN [Concomitant]
     Indication: ARTHRALGIA

REACTIONS (3)
  - Bronchitis [Recovered/Resolved]
  - Pneumonia [Recovered/Resolved]
  - Nasopharyngitis [Recovered/Resolved]
